FAERS Safety Report 9126584 (Version 1)
Quarter: 2013Q1

REPORT INFORMATION
  Report Type: Spontaneous
  Country: BR (occurrence: BR)
  Receive Date: 20130117
  Receipt Date: 20130117
  Transmission Date: 20140127
  Serious: Yes (Other)
  Sender: FDA-Public Use
  Company Number: BR-PFIZER INC-2013018055

PATIENT
  Age: 71 Year
  Sex: Female
  Weight: 72 kg

DRUGS (5)
  1. LIPITOR [Suspect]
     Dosage: UNK, 1X/DAY
     Route: 048
     Dates: start: 20120115
  2. ATENOLOL [Concomitant]
     Indication: BLOOD PRESSURE
     Dosage: UNK
     Dates: start: 2005
  3. BENICAR ANLO [Concomitant]
     Dosage: 40/10 DAY AND 20/5 AT NIGHT
     Dates: start: 2010
  4. BUFFERIN [Concomitant]
     Indication: ANTICOAGULANT THERAPY
     Dosage: UNK
     Dates: start: 2010
  5. INSULIN [Concomitant]
     Indication: DIABETES MELLITUS
     Dosage: UNK
     Dates: start: 2005

REACTIONS (3)
  - Cardiovascular disorder [Recovered/Resolved]
  - Cardiovascular disorder [Recovered/Resolved]
  - Malaise [Recovered/Resolved]
